FAERS Safety Report 7577273-X (Version None)
Quarter: 2011Q2

REPORT INFORMATION
  Report Type: 
  Country: None (occurrence: None)
  Receive Date: 20110628
  Receipt Date: 20110614
  Transmission Date: 20111010
  Serious: Yes (Life-Threatening, Other)
  Sender: FDA-Public Use
  Company Number: DE-BAYER-2011-051595

PATIENT
  Age: 49 Year
  Sex: Male
  Weight: 100 kg

DRUGS (5)
  1. TELMISARTAN [Suspect]
     Dosage: 28 TABLETS, ONCE
  2. TELMISARTAN [Suspect]
     Dosage: 3 DF, ONCE
  3. LOSARTAN POTASSIUM [Suspect]
     Dosage: 30 TABLETS, ONCE
  4. SOTALOL HCL [Suspect]
     Dosage: 45 TABLETS, ONCE
  5. BISOPROLOL [Suspect]
     Dosage: 3 TABLETS, ONCE

REACTIONS (4)
  - ABDOMINAL PAIN [None]
  - ARRHYTHMIA [None]
  - HYPOGLYCAEMIA [None]
  - TORSADE DE POINTES [None]
